FAERS Safety Report 25628459 (Version 1)
Quarter: 2025Q3

REPORT INFORMATION
  Report Type: Spontaneous
  Country: US (occurrence: US)
  Receive Date: 20250731
  Receipt Date: 20250731
  Transmission Date: 20251021
  Serious: No
  Sender: Alora Pharma
  Company Number: US-VERTICAL PHARMACEUTICALS-2024ALO00414

PATIENT
  Sex: Female

DRUGS (3)
  1. DIVIGEL [Suspect]
     Active Substance: ESTRADIOL
     Dates: start: 2014, end: 202407
  2. DIVIGEL [Suspect]
     Active Substance: ESTRADIOL
     Dates: start: 202407, end: 2024
  3. DIVIGEL [Suspect]
     Active Substance: ESTRADIOL
     Dates: start: 2024

REACTIONS (7)
  - Hot flush [Unknown]
  - Malaise [Unknown]
  - Insomnia [Unknown]
  - Drug ineffective [Unknown]
  - Product physical consistency issue [Unknown]
  - Product storage error [Unknown]
  - Product temperature excursion issue [Unknown]

NARRATIVE: CASE EVENT DATE: 20240101
